FAERS Safety Report 9134359 (Version 1)
Quarter: 2013Q1

REPORT INFORMATION
  Report Type: Spontaneous
  Country: US (occurrence: US)
  Receive Date: 20130304
  Receipt Date: 20130304
  Transmission Date: 20140127
  Serious: No
  Sender: FDA-Public Use
  Company Number: US-JNJFOC-20130115339

PATIENT
  Sex: Female
  Weight: 74.39 kg

DRUGS (1)
  1. INVEGA SUSTENNA [Suspect]
     Indication: SCHIZOPHRENIA
     Route: 030
     Dates: start: 20121202, end: 20130123

REACTIONS (3)
  - Injection site swelling [Not Recovered/Not Resolved]
  - Injection site inflammation [Not Recovered/Not Resolved]
  - Injection site reaction [Not Recovered/Not Resolved]
